FAERS Safety Report 5653646-7 (Version None)
Quarter: 2008Q1

REPORT INFORMATION
  Report Type: 
  Country: None (occurrence: None)
  Receive Date: 20080306
  Receipt Date: 20080228
  Transmission Date: 20080703
  Serious: Yes (Death)
  Sender: FDA-Public Use
  Company Number: US-ELI_LILLY_AND_COMPANY-US200712001005

PATIENT
  Age: 55 Year
  Sex: Female

DRUGS (2)
  1. XIGRIS [Suspect]
     Indication: SEPSIS
     Dosage: OTHER; 8 HOURS
     Dates: start: 20071101, end: 20071101
  2. OXYGEN [Concomitant]
     Indication: MECHANICAL VENTILATION
     Dates: start: 20070101, end: 20071101

REACTIONS (1)
  - MULTI-ORGAN FAILURE [None]
